FAERS Safety Report 23114890 (Version 1)
Quarter: 2023Q4

REPORT INFORMATION
  Report Type: Spontaneous
  Country: US (occurrence: US)
  Receive Date: 20231027
  Receipt Date: 20231027
  Transmission Date: 20240109
  Serious: No
  Sender: FDA-Public Use
  Company Number: US-SEPTODONT-2021006243

PATIENT

DRUGS (1)
  1. CITANEST FORTE [Suspect]
     Active Substance: EPINEPHRINE BITARTRATE\PRILOCAINE HYDROCHLORIDE
     Indication: Dental local anaesthesia
     Route: 004

REACTIONS (2)
  - Hypoaesthesia oral [Recovered/Resolved]
  - Therapeutic product effect prolonged [Recovered/Resolved]
